FAERS Safety Report 6368417-6 (Version None)
Quarter: 2009Q3

REPORT INFORMATION
  Report Type: 
  Country: None (occurrence: None)
  Receive Date: 20090915
  Receipt Date: 20090331
  Transmission Date: 20100115
  Serious: Yes (Life-Threatening, Other)
  Sender: FDA-Public Use
  Company Number: 2008AP000197

PATIENT
  Age: 92 Year
  Sex: Female
  Weight: 35.8342 kg

DRUGS (1)
  1. LABETALOL HYDROCHLORIDE [Suspect]
     Dosage: 20 MG; 1X; IV
     Route: 042
     Dates: start: 20071231, end: 20071231

REACTIONS (2)
  - BLOOD PRESSURE SYSTOLIC DECREASED [None]
  - HEART RATE DECREASED [None]
